FAERS Safety Report 8669514 (Version 2)
Quarter: 2013Q4

REPORT INFORMATION
  Report Type: Spontaneous
  Country: US (occurrence: US)
  Receive Date: 20120718
  Receipt Date: 20131101
  Transmission Date: 20140711
  Serious: No
  Sender: FDA-Public Use
  Company Number: US-009507513-1207USA002999

PATIENT
  Sex: Male

DRUGS (10)
  1. ZOCOR [Suspect]
     Route: 048
  2. TRICOR (ADENOSINE) [Suspect]
  3. CELEBREX [Concomitant]
     Dosage: 1 DF, QD
     Route: 048
  4. GEMFIBROZIL [Concomitant]
     Dosage: 1 DF, BID
     Route: 048
  5. LISINOPRIL [Concomitant]
     Dosage: 1 DF, QD
     Route: 048
  6. NOVOLOG [Concomitant]
     Dosage: 0.5 IU/KG, UNK
     Route: 058
  7. METFORMIN [Concomitant]
     Dosage: 1 DF, BID
     Route: 048
  8. ACTOS [Concomitant]
     Dosage: 1 DF, BID
     Route: 048
  9. LANTUS [Concomitant]
     Dosage: 10 IU, QD
     Route: 058
  10. NEURONTIN [Concomitant]

REACTIONS (2)
  - Asthenia [Unknown]
  - Myalgia [Unknown]
